FAERS Safety Report 11148565 (Version 3)
Quarter: 2017Q4

REPORT INFORMATION
  Report Type: Spontaneous
  Country: US (occurrence: US)
  Receive Date: 20150529
  Receipt Date: 20171013
  Transmission Date: 20180320
  Serious: Yes (Other)
  Sender: FDA-Public Use
  Company Number: US-PFIZER INC-2015172117

PATIENT
  Age: 72 Year
  Sex: Female
  Weight: 72.56 kg

DRUGS (2)
  1. IBRANCE [Suspect]
     Active Substance: PALBOCICLIB
     Dosage: 100 MG, CYCLIC (DAYS 1-21 Q28 DAYS)
     Route: 048
     Dates: start: 20150425, end: 20170830
  2. IBRANCE [Suspect]
     Active Substance: PALBOCICLIB
     Indication: BREAST CANCER METASTATIC
     Dosage: 125 MG, CYCLIC (ONE DAILY FOR 21 DAYS)
     Dates: start: 20150423

REACTIONS (5)
  - Fatigue [Unknown]
  - Muscle spasms [Unknown]
  - Neutropenia [Unknown]
  - Neoplasm progression [Unknown]
  - Pain in extremity [Unknown]
